FAERS Safety Report 25494174 (Version 2)
Quarter: 2025Q3

REPORT INFORMATION
  Report Type: Spontaneous
  Country: US (occurrence: US)
  Receive Date: 20250630
  Receipt Date: 20250930
  Transmission Date: 20251021
  Serious: Yes (Other)
  Sender: PFIZER
  Company Number: US-PFIZER INC-202500128213

PATIENT
  Age: 79 Year
  Sex: Female

DRUGS (1)
  1. XELJANZ [Suspect]
     Active Substance: TOFACITINIB CITRATE
     Indication: Rheumatoid arthritis
     Dosage: 5 MG, DAILY

REACTIONS (4)
  - Pneumonia [Unknown]
  - Drug ineffective [Unknown]
  - Musculoskeletal stiffness [Not Recovered/Not Resolved]
  - Herpes zoster [Unknown]
